FAERS Safety Report 24829043 (Version 1)
Quarter: 2025Q1

REPORT INFORMATION
  Report Type: Spontaneous
  Country: US (occurrence: US)
  Receive Date: 20250110
  Receipt Date: 20250110
  Transmission Date: 20250408
  Serious: Yes (Hospitalization, Other)
  Sender: BAXTER
  Company Number: US-MLMSERVICE-20241231-PI327992-00029-1

PATIENT

DRUGS (1)
  1. ACETAMINOPHEN [Suspect]
     Active Substance: ACETAMINOPHEN
     Route: 064

REACTIONS (3)
  - Ductus arteriosus stenosis foetal [Recovering/Resolving]
  - Tricuspid valve incompetence [Recovering/Resolving]
  - Right ventricular dilatation [Recovering/Resolving]
